FAERS Safety Report 20724585 (Version 2)
Quarter: 2022Q2

REPORT INFORMATION
  Report Type: Spontaneous
  Country: CA (occurrence: CA)
  Receive Date: 20220419
  Receipt Date: 20220524
  Transmission Date: 20220721
  Serious: Yes (Other)
  Sender: FDA-Public Use
  Company Number: CA-PFIZER INC-202200256833

PATIENT
  Age: 49 Year
  Sex: Female

DRUGS (16)
  1. RUXIENCE [Suspect]
     Active Substance: RITUXIMAB-PVVR
     Indication: Granulomatosis with polyangiitis
     Dosage: 1 G, DAY 1, DAY 15
     Route: 042
     Dates: start: 20220224
  2. RUXIENCE [Suspect]
     Active Substance: RITUXIMAB-PVVR
     Dosage: 1 G, DAY 1, DAY 15
     Route: 042
     Dates: start: 20220310
  3. RUXIENCE [Suspect]
     Active Substance: RITUXIMAB-PVVR
     Dosage: 1G, EVERY 4 MONTHS (NOT YET STARTED)
     Route: 042
     Dates: start: 20220310
  4. PLAQUENIL [Concomitant]
     Active Substance: HYDROXYCHLOROQUINE SULFATE
     Dosage: 200 MG 3 DAYS OUT OF 7400 MG 4 DAYS OUT OF 7
  5. PREDNISONE [Concomitant]
     Active Substance: PREDNISONE
     Dosage: 20 MG
  6. TELMISARTAN [Concomitant]
     Active Substance: TELMISARTAN
     Dosage: 80 MG, ONCE DAILY
  7. PANTOPRAZOLE SODIUM [Concomitant]
     Active Substance: PANTOPRAZOLE SODIUM
     Dosage: 40 MG, DAILY
  8. CALCIUM [Concomitant]
     Active Substance: CALCIUM
     Dosage: UNK
  9. VITAMIN D NOS [Concomitant]
     Active Substance: VITAMIN D NOS
     Dosage: UNK
  10. VYVANSE [Concomitant]
     Active Substance: LISDEXAMFETAMINE DIMESYLATE
     Dosage: 50 MG. DISCONTINUED
  11. CELLCEPT [Concomitant]
     Active Substance: MYCOPHENOLATE MOFETIL
     Dosage: 1000 MG, 2X/DAY
  12. SEPTRA [Concomitant]
     Active Substance: SULFAMETHOXAZOLE\TRIMETHOPRIM
     Dosage: 1 DF, WEEKLY
  13. ALENDRONATE [Concomitant]
     Active Substance: ALENDRONATE SODIUM
     Dosage: 1 DF
  14. LASIX [Concomitant]
     Active Substance: FUROSEMIDE
     Dosage: 20 MG, DAILY
  15. DULOXETINE [Concomitant]
     Active Substance: DULOXETINE
     Dosage: 60 MG, DAILY
  16. ZOPICLONE [Concomitant]
     Active Substance: ZOPICLONE
     Dosage: 1 DF, AS NEEDED

REACTIONS (11)
  - Granulomatosis with polyangiitis [Unknown]
  - Condition aggravated [Unknown]
  - Cutaneous vasculitis [Unknown]
  - Erythema [Unknown]
  - Electric shock sensation [Unknown]
  - Burning sensation [Unknown]
  - Fatigue [Unknown]
  - Loss of personal independence in daily activities [Unknown]
  - Weight decreased [Unknown]
  - Raynaud^s phenomenon [Unknown]
  - Off label use [Unknown]

NARRATIVE: CASE EVENT DATE: 20220101
